FAERS Safety Report 11188923 (Version 1)
Quarter: 2015Q2

REPORT INFORMATION
  Report Type: Report from Study
  Country: US (occurrence: US)
  Receive Date: 20150615
  Receipt Date: 20150615
  Transmission Date: 20150821
  Serious: Yes (Hospitalization)
  Sender: FDA-Public Use
  Company Number: US-ROCHE-667269

PATIENT
  Age: 80 Year
  Sex: Female

DRUGS (3)
  1. PACLITAXEL. [Suspect]
     Active Substance: PACLITAXEL
     Indication: CERVIX CARCINOMA RECURRENT
     Dosage: 135 MG/M2, Q21D
     Route: 042
  2. CISPLATIN. [Suspect]
     Active Substance: CISPLATIN
     Indication: CERVIX CARCINOMA RECURRENT
     Dosage: 50 MG/M2, Q21D
     Route: 065
  3. BEVACIZUMAB [Suspect]
     Active Substance: BEVACIZUMAB
     Indication: CERVIX CARCINOMA RECURRENT
     Dosage: 15 MG/KG. Q21D?LAST DOSE PRIOR TO SAE- 29/JUL/2009
     Route: 042
     Dates: start: 20090728

REACTIONS (11)
  - Lower gastrointestinal haemorrhage [Unknown]
  - Dysphagia [Unknown]
  - Hypermagnesaemia [Unknown]
  - Infection [Unknown]
  - Enterocolitis infectious [Unknown]
  - Vascular access complication [Unknown]
  - Decreased appetite [Unknown]
  - Anaemia [Unknown]
  - Diarrhoea [Recovered/Resolved]
  - Vomiting [Unknown]
  - Fatigue [Unknown]

NARRATIVE: CASE EVENT DATE: 20090820
